FAERS Safety Report 7604266-6 (Version None)
Quarter: 2011Q2

REPORT INFORMATION
  Report Type: 
  Country: None (occurrence: None)
  Receive Date: 20110630
  Receipt Date: 20110616
  Transmission Date: 20111010
  Serious: Yes (Hospitalization, Other)
  Sender: FDA-Public Use
  Company Number: BR-001814

PATIENT
  Age: 20 Year
  Sex: Female

DRUGS (1)
  1. NAGLAZYME [Suspect]
     Indication: PRODUCT USED FOR UNKNOWN INDICATION
     Dosage: (20 MG 1X/WEEK INTRAVENOUS DRIP)
     Route: 042
     Dates: start: 20101001

REACTIONS (1)
  - CARDIAC VALVE DISEASE [None]
